FAERS Safety Report 4361167-7 (Version None)
Quarter: 2004Q2

REPORT INFORMATION
  Report Type: 
  Country: None (occurrence: None)
  Receive Date: 20040507
  Receipt Date: 20031118
  Transmission Date: 20050107
  Serious: Yes (Life-Threatening, Hospitalization)
  Sender: FDA-Public Use
  Company Number: PHEH2003US10701

PATIENT
  Age: 34 Year
  Sex: Female

DRUGS (4)
  1. TEGRETOL [Suspect]
     Dosage: ORAL
     Route: 048
  2. LAMICTAL [Suspect]
     Indication: BIPOLAR DISORDER
     Dosage: ORAL
     Route: 048
     Dates: start: 20030701
  3. SEROQUEL [Suspect]
     Dosage: 50MG, ORAL
     Route: 048
  4. KLONOPIN [Suspect]

REACTIONS (3)
  - COMA [None]
  - INTENTIONAL OVERDOSE [None]
  - TACHYCARDIA [None]
